FAERS Safety Report 22143920 (Version 2)
Quarter: 2023Q2

REPORT INFORMATION
  Report Type: Spontaneous
  Country: US (occurrence: US)
  Receive Date: 20230327
  Receipt Date: 20230623
  Transmission Date: 20230721
  Serious: No
  Sender: FDA-Public Use
  Company Number: US-BRISTOL-MYERS SQUIBB COMPANY-2023-042423

PATIENT
  Age: 60 Year
  Sex: Female

DRUGS (2)
  1. OPDIVO [Suspect]
     Active Substance: NIVOLUMAB
     Indication: Peripheral T-cell lymphoma unspecified
     Dosage: NEW (CORRECT): EVERY 14 DAYS.?STRENGTH AND PRESENTATION OF THE AE : 100 MG VIALS
     Route: 042
  2. OPDIVO [Suspect]
     Active Substance: NIVOLUMAB
     Dosage: DOSE : 300 MG;     FREQ : PREVIOUSLY (ERROR): EVERY 21 DAYS ?STRENGTH AND PRESENTATION OF THE AE : 1
     Route: 042

REACTIONS (2)
  - Off label use [Unknown]
  - Product prescribing error [Unknown]
